FAERS Safety Report 7229685-1 (Version None)
Quarter: 2011Q1

REPORT INFORMATION
  Report Type: 
  Country: None (occurrence: None)
  Receive Date: 20110117
  Receipt Date: 20110106
  Transmission Date: 20110831
  Serious: Yes (Hospitalization)
  Sender: FDA-Public Use
  Company Number: PHHO2011US00628

PATIENT

DRUGS (3)
  1. DOCETAXEL [Suspect]
     Indication: HEAD AND NECK CANCER
     Dosage: UNK
     Route: 042
     Dates: start: 20101230
  2. CISPLATIN [Suspect]
     Indication: HEAD AND NECK CANCER
     Dosage: UNK
     Route: 042
     Dates: start: 20101230
  3. AFINITOR [Suspect]
     Indication: HEAD AND NECK CANCER
     Dosage: UNK
     Route: 048
     Dates: start: 20101230

REACTIONS (1)
  - FEBRILE NEUTROPENIA [None]
